FAERS Safety Report 17134220 (Version 1)
Quarter: 2019Q4

REPORT INFORMATION
  Report Type: Spontaneous
  Country: CN (occurrence: CN)
  Receive Date: 20191210
  Receipt Date: 20191210
  Transmission Date: 20200122
  Serious: Yes (Other)
  Sender: FDA-Public Use
  Company Number: CN-TAKEDA-2019TUS069654

PATIENT
  Age: 30 Year
  Sex: Male

DRUGS (6)
  1. METHOTREXATE. [Suspect]
     Active Substance: METHOTREXATE
     Indication: ACUTE LYMPHOCYTIC LEUKAEMIA
     Dosage: UNK
     Route: 065
  2. METHOTREXATE. [Suspect]
     Active Substance: METHOTREXATE
     Indication: CENTRAL NERVOUS SYSTEM LEUKAEMIA
  3. PONATINIB [Suspect]
     Active Substance: PONATINIB
     Indication: ACUTE LYMPHOCYTIC LEUKAEMIA
     Dosage: 45 MILLIGRAM, QD
     Route: 048
  4. PONATINIB [Suspect]
     Active Substance: PONATINIB
     Indication: CENTRAL NERVOUS SYSTEM LEUKAEMIA
  5. PONATINIB [Suspect]
     Active Substance: PONATINIB
     Indication: PHILADELPHIA CHROMOSOME POSITIVE
  6. METHOTREXATE. [Suspect]
     Active Substance: METHOTREXATE
     Indication: PHILADELPHIA CHROMOSOME POSITIVE

REACTIONS (2)
  - Chronic graft versus host disease [Recovered/Resolved]
  - Off label use [Unknown]
